FAERS Safety Report 6993209-4 (Version None)
Quarter: 2010Q3

REPORT INFORMATION
  Report Type: 
  Country: None (occurrence: None)
  Receive Date: 20100917
  Receipt Date: 20070320
  Transmission Date: 20110219
  Serious: Yes (Other)
  Sender: FDA-Public Use
  Company Number: US-ASTRAZENECA-2006UW24023

PATIENT
  Age: 15590 Day
  Sex: Female
  Weight: 161 kg

DRUGS (17)
  1. SEROQUEL [Suspect]
     Dosage: 25 MG (2) EA AT NIGHT
     Route: 048
     Dates: start: 20030812
  2. ALTACE [Concomitant]
     Dates: start: 20060101
  3. NORVASC [Concomitant]
     Dates: start: 20060101
  4. ZOCOR [Concomitant]
     Dates: start: 20040101
  5. PERCOCET [Concomitant]
     Dates: start: 20060101
  6. METFORMIN [Concomitant]
     Dates: start: 20060101
  7. AVANDAMET [Concomitant]
     Dosage: 4-1000 MG TWICE A DAY
     Dates: start: 20040101
  8. GLYBURIDE [Concomitant]
     Dates: start: 20040101
  9. DIOVAN [Concomitant]
     Indication: HYPERTENSION
     Dates: start: 20030101
  10. RISPERDAL [Concomitant]
     Dates: start: 20040101
  11. AVANDIA [Concomitant]
     Dates: start: 20030101
  12. AMARYL [Concomitant]
     Dates: start: 20030101
  13. PAXIL [Concomitant]
     Dates: start: 20030812
  14. SINGULAIR [Concomitant]
     Dates: start: 20031003
  15. FLEXERIL [Concomitant]
     Dates: start: 20031003
  16. TRAZODONE HCL [Concomitant]
     Dates: start: 20031003
  17. ERT [Concomitant]
     Dosage: (1) EA QHS
     Route: 048
     Dates: start: 20030812

REACTIONS (3)
  - DIABETES MELLITUS [None]
  - DIABETES MELLITUS INADEQUATE CONTROL [None]
  - TYPE 2 DIABETES MELLITUS [None]
